FAERS Safety Report 24610811 (Version 1)
Quarter: 2024Q4

REPORT INFORMATION
  Report Type: Spontaneous
  Country: RO (occurrence: RO)
  Receive Date: 20241112
  Receipt Date: 20241112
  Transmission Date: 20250114
  Serious: Yes (Other)
  Sender: ABBVIE
  Company Number: RO-ABBVIE-5994796

PATIENT
  Age: 69 Year
  Sex: Female

DRUGS (5)
  1. VENETOCLAX [Suspect]
     Active Substance: VENETOCLAX
     Indication: Acute myeloid leukaemia
     Dosage: DAY 1: 100 MG, DAY 2: 200 MG, DAY 3-DAY28: 400 MG?CYCLE 4: VENETOCLAX 21 DAYS?CYCLE 5: VENETOCLAX...
     Route: 048
     Dates: start: 20230430
  2. ACYCLOVIR [Concomitant]
     Active Substance: ACYCLOVIR
     Indication: Antiviral prophylaxis
  3. AZACITIDINE [Concomitant]
     Active Substance: AZACITIDINE
     Indication: Acute myeloid leukaemia
     Dosage: 130 MILLIGRAM
     Route: 065
     Dates: start: 20230430
  4. BISEPTOL [Concomitant]
     Active Substance: SULFAMETHOXAZOLE\TRIMETHOPRIM
     Indication: Antifungal prophylaxis
     Dosage: 2 TABLETS X 2/DAY?FORM STRENGTH: 480 MILLIGRAM?FREQUENCY TEXT: MONDAY, WEDNESDAY, FRIDAY
  5. ALLOPURINOL [Concomitant]
     Active Substance: ALLOPURINOL
     Indication: Prophylaxis

REACTIONS (6)
  - Aplastic anaemia [Unknown]
  - Neutropenia [Unknown]
  - Pneumonia [Unknown]
  - Cytopenia [Unknown]
  - COVID-19 [Unknown]
  - Tumour lysis syndrome [Unknown]
